FAERS Safety Report 5523646-6 (Version None)
Quarter: 2007Q4

REPORT INFORMATION
  Report Type: 
  Country: None (occurrence: None)
  Receive Date: 20071121
  Receipt Date: 20071109
  Transmission Date: 20080405
  Serious: Yes (Hospitalization)
  Sender: FDA-Public Use
  Company Number: JP-SANOFI-SYNTHELABO-F01200701374

PATIENT
  Sex: Male
  Weight: 58.8 kg

DRUGS (7)
  1. MARZULENE [Concomitant]
     Indication: PROPHYLAXIS
     Dosage: 1000 MG
     Route: 048
     Dates: start: 20070529, end: 20070723
  2. MARZULENE [Concomitant]
     Dosage: 1500 MG
     Route: 048
     Dates: start: 20070724
  3. ADETPHOS [Concomitant]
     Indication: CEREBRAL INFARCTION
     Dosage: 60 MG
     Route: 048
     Dates: start: 20070522, end: 20070529
  4. MERISLON [Concomitant]
     Indication: CEREBRAL INFARCTION
     Dosage: 18 MG
     Route: 048
     Dates: start: 20070522, end: 20070529
  5. KETOPROFEN [Concomitant]
     Indication: ARTHRITIS
     Dosage: AS NEEDED
     Route: 062
     Dates: start: 20070529
  6. CLOPIDOGREL [Suspect]
     Indication: CEREBRAL INFARCTION
     Dosage: 50MG/75 MG : BLIND
     Route: 048
     Dates: start: 20070529, end: 20070915
  7. CLOPIDOGREL [Suspect]
     Dosage: 50MG/75 MG : BLIND
     Route: 048
     Dates: start: 20070922, end: 20071026

REACTIONS (1)
  - LUNG NEOPLASM MALIGNANT [None]
